FAERS Safety Report 6860611-0 (Version None)
Quarter: 2010Q3

REPORT INFORMATION
  Report Type: 
  Country: None (occurrence: None)
  Receive Date: 20100720
  Receipt Date: 20100712
  Transmission Date: 20110219
  Serious: Yes (Life-Threatening, Other)
  Sender: FDA-Public Use
  Company Number: GB-ABBOTT-10P-167-0646177-00

PATIENT
  Sex: Male
  Weight: 85 kg

DRUGS (6)
  1. HUMIRA [Suspect]
     Indication: CROHN'S DISEASE
     Route: 058
     Dates: start: 20100404
  2. HUMIRA [Suspect]
     Indication: FISTULA
     Dosage: WEEK 1
     Route: 058
     Dates: start: 20100326
  3. HUMIRA [Suspect]
     Dosage: WEEK 2
     Route: 058
  4. REMICADE [Suspect]
     Indication: PRODUCT USED FOR UNKNOWN INDICATION
     Dosage: LYOPHILIZED POWDER
     Route: 042
  5. PENTASA [Concomitant]
     Indication: CROHN'S DISEASE
  6. MESALAZINE [Concomitant]
     Indication: PRODUCT USED FOR UNKNOWN INDICATION

REACTIONS (4)
  - DEPRESSION [None]
  - DRUG INEFFECTIVE [None]
  - SUICIDAL IDEATION [None]
  - SUICIDE ATTEMPT [None]
